FAERS Safety Report 6263713-5 (Version None)
Quarter: 2009Q3

REPORT INFORMATION
  Report Type: 
  Country: None (occurrence: None)
  Receive Date: 20090707
  Receipt Date: 20090707
  Transmission Date: 20100115
  Serious: No
  Sender: FDA-Public Use
  Company Number: None

PATIENT
  Sex: Male
  Weight: 74.8435 kg

DRUGS (1)
  1. ZICAM GEL SPRAY ZICAM [Suspect]
     Indication: NASOPHARYNGITIS
     Dosage: 1 SQUIRT ONCE NASAL
     Route: 045
     Dates: start: 20080220, end: 20080220

REACTIONS (8)
  - ANOSMIA [None]
  - DIZZINESS [None]
  - EYE SWELLING [None]
  - HYPOSMIA [None]
  - IMPAIRED DRIVING ABILITY [None]
  - NASAL CONGESTION [None]
  - NASAL DISCOMFORT [None]
  - SPEECH DISORDER [None]
